FAERS Safety Report 11518810 (Version 4)
Quarter: 2015Q4

REPORT INFORMATION
  Report Type: Other
  Country: DK (occurrence: DK)
  Receive Date: 20150917
  Receipt Date: 20151222
  Transmission Date: 20160304
  Serious: Yes (Death, Life-Threatening, Other)
  Sender: FDA-Public Use
  Company Number: DK-MYLANLABS-2015M1030392

PATIENT

DRUGS (8)
  1. BACLOFEN. [Suspect]
     Active Substance: BACLOFEN
     Indication: MUSCLE SPASTICITY
     Dosage: 25 MG, UNK (25 MG, FIVE TIMES)
     Route: 048
     Dates: start: 20150611
  2. LAXOBERAL [Concomitant]
     Active Substance: SODIUM PICOSULFATE
     Indication: DYSPEPSIA
     Route: 048
  3. CEFTRIAXONE. [Suspect]
     Active Substance: CEFTRIAXONE
     Indication: SEPSIS
     Dosage: UNK
     Route: 017
     Dates: start: 20150611
  4. LIORESAL [Suspect]
     Active Substance: BACLOFEN
     Indication: MUSCLE SPASTICITY
     Dosage: 125 ?G, QD
     Route: 037
     Dates: start: 1995
  5. DIAZEPAM. [Suspect]
     Active Substance: DIAZEPAM
     Dosage: UNK
  6. PANTOPRAZOLE [Concomitant]
     Active Substance: PANTOPRAZOLE SODIUM
     Indication: DYSPEPSIA
     Dosage: 20 MG, QD
     Route: 048
  7. ACETYLSALICYLIC ACID [Concomitant]
     Active Substance: ASPIRIN
     Indication: PRODUCT USED FOR UNKNOWN INDICATION
     Dosage: 5 MG, QD
     Route: 048
  8. MAGNESIUM                          /00123201/ [Concomitant]
     Indication: DYSPEPSIA
     Dosage: 2 G, QD
     Route: 048

REACTIONS (10)
  - Drug hypersensitivity [Fatal]
  - Malaise [Unknown]
  - Skin erosion [Not Recovered/Not Resolved]
  - Skin irritation [Not Recovered/Not Resolved]
  - Sepsis [Unknown]
  - Anaphylactic shock [Fatal]
  - Drug withdrawal syndrome [Fatal]
  - Myocardial infarction [Unknown]
  - Medical device site infection [Unknown]
  - Multi-organ failure [Fatal]

NARRATIVE: CASE EVENT DATE: 201501
